FAERS Safety Report 7591655-1 (Version None)
Quarter: 2011Q3

REPORT INFORMATION
  Report Type: 
  Country: None (occurrence: None)
  Receive Date: 20110706
  Receipt Date: 20080828
  Transmission Date: 20111222
  Serious: Yes (Other)
  Sender: FDA-Public Use
  Company Number: US-BAYER-200824299NA

PATIENT
  Age: 40 Year
  Sex: Male
  Weight: 81 kg

DRUGS (17)
  1. MAGNEVIST [Suspect]
     Indication: NUCLEAR MAGNETIC RESONANCE IMAGING
     Dates: start: 20050101, end: 20050615
  2. EPOGEN [Concomitant]
  3. COUMADIN [Concomitant]
  4. OMNISCAN [Suspect]
     Indication: ANGIOGRAM
     Dosage: 20 ML, ONCE
     Dates: start: 20030508, end: 20030508
  5. TOPROL-XL [Concomitant]
  6. OMNISCAN [Suspect]
     Indication: NUCLEAR MAGNETIC RESONANCE IMAGING
     Dosage: 20 ML, ONCE
     Dates: start: 20010522, end: 20010522
  7. OPTIMARK [Suspect]
     Indication: NUCLEAR MAGNETIC RESONANCE IMAGING
  8. PROHANCE [Suspect]
     Indication: NUCLEAR MAGNETIC RESONANCE IMAGING
  9. GADOLINIUM IN UNSPECIFIED DRUG [Suspect]
     Indication: NUCLEAR MAGNETIC RESONANCE IMAGING BRAIN
     Dosage: 15 UNITS
     Dates: start: 20050302, end: 20050302
  10. FERROUS SULFATE TAB [Concomitant]
  11. OMNISCAN [Suspect]
  12. LOTREL [Concomitant]
  13. OMNISCAN [Suspect]
     Dosage: 20 ML, ONCE
     Dates: start: 20030303, end: 20030303
  14. OMNISCAN [Suspect]
     Indication: NUCLEAR MAGNETIC RESONANCE IMAGING BRAIN
     Dosage: 20 ML, ONCE
     Dates: start: 20020710, end: 20020710
  15. PHOSLO [Concomitant]
  16. OMNISCAN [Suspect]
     Dosage: UNK
     Dates: start: 20031123, end: 20031123
  17. MULTIHANCE [Suspect]
     Indication: NUCLEAR MAGNETIC RESONANCE IMAGING

REACTIONS (12)
  - NEPHROGENIC SYSTEMIC FIBROSIS [None]
  - SKIN HYPERTROPHY [None]
  - INJURY [None]
  - MOBILITY DECREASED [None]
  - ARTHRALGIA [None]
  - PAIN [None]
  - GENERAL PHYSICAL HEALTH DETERIORATION [None]
  - JOINT CONTRACTURE [None]
  - MYALGIA [None]
  - FIBROSIS [None]
  - JOINT RANGE OF MOTION DECREASED [None]
  - SCAR [None]
